FAERS Safety Report 24749394 (Version 1)
Quarter: 2024Q4

REPORT INFORMATION
  Report Type: Spontaneous
  Country: CA (occurrence: CA)
  Receive Date: 20241218
  Receipt Date: 20241218
  Transmission Date: 20250114
  Serious: Yes (Other)
  Sender: SANDOZ
  Company Number: CA-SANDOZ-SDZ2024CA103218

PATIENT
  Sex: Female

DRUGS (6)
  1. CYTARABINE [Suspect]
     Active Substance: CYTARABINE
     Indication: Langerhans^ cell histiocytosis
     Dosage: 100 MG, PER METER SQUARED FOR FIVE DAYS MONTHLY FOR 11 OF A PLANNED 12
     Route: 065
     Dates: end: 201804
  2. HYDROXYUREA [Suspect]
     Active Substance: HYDROXYUREA
     Indication: Langerhans^ cell histiocytosis
     Dosage: UNK
     Route: 065
     Dates: start: 201908, end: 20200429
  3. INDOMETHACIN [Suspect]
     Active Substance: INDOMETHACIN
     Indication: Langerhans^ cell histiocytosis
     Dosage: UNK
     Route: 065
     Dates: start: 201807
  4. VEMURAFENIB [Suspect]
     Active Substance: VEMURAFENIB
     Dosage: 240 MG, QD
     Route: 048
     Dates: end: 202105
  5. VEMURAFENIB [Suspect]
     Active Substance: VEMURAFENIB
     Indication: Langerhans^ cell histiocytosis
     Dosage: 960 MG, BID
     Route: 048
     Dates: start: 20201218
  6. ZOLEDRONIC ACID [Suspect]
     Active Substance: ZOLEDRONIC ACID
     Indication: Langerhans^ cell histiocytosis
     Dosage: UNK, QMO, POST 13 CYCLES
     Route: 065

REACTIONS (4)
  - Langerhans^ cell histiocytosis [Unknown]
  - Nausea [Unknown]
  - Vomiting [Unknown]
  - Product use in unapproved indication [Unknown]
